FAERS Safety Report 11229413 (Version 3)
Quarter: 2015Q3

REPORT INFORMATION
  Report Type: Spontaneous
  Country: JP (occurrence: JP)
  Receive Date: 20150630
  Receipt Date: 20150730
  Transmission Date: 20151125
  Serious: Yes (Hospitalization)
  Sender: FDA-Public Use
  Company Number: JP-GE HEALTHCARE MEDICAL DIAGNOSTICS-OMPQ-PR-1506S-1004

PATIENT
  Age: 81 Year
  Sex: Female
  Weight: 43 kg

DRUGS (11)
  1. PITAVASTATIN [Concomitant]
     Active Substance: PITAVASTATIN
  2. MICARDIS [Concomitant]
     Active Substance: TELMISARTAN
  3. OMNIPAQUE [Suspect]
     Active Substance: IOHEXOL
     Indication: DIAGNOSTIC PROCEDURE
  4. IOVERIN [Concomitant]
     Dates: start: 20150605
  5. BAYASPIRIN [Concomitant]
     Active Substance: ASPIRIN
  6. LIXIANA [Concomitant]
     Active Substance: EDOXABAN TOSILATE MONOHYDRATE
     Dates: start: 20150605
  7. SARPOGRELATE [Concomitant]
     Active Substance: SARPOGRELATE
  8. OMNIPAQUE [Suspect]
     Active Substance: IOHEXOL
     Indication: EMBOLISM VENOUS
     Route: 042
     Dates: start: 20150615, end: 20150615
  9. FEBURIC [Concomitant]
     Active Substance: FEBUXOSTAT
  10. LANSOPRAZOLE. [Concomitant]
     Active Substance: LANSOPRAZOLE
  11. FUROSEMIDE. [Concomitant]
     Active Substance: FUROSEMIDE
     Dates: start: 20150612

REACTIONS (1)
  - Anaphylactoid reaction [Recovering/Resolving]

NARRATIVE: CASE EVENT DATE: 20150615
